FAERS Safety Report 7970662-0 (Version None)
Quarter: 2011Q4

REPORT INFORMATION
  Report Type: 
  Country: None (occurrence: None)
  Receive Date: 20111212
  Receipt Date: 20111203
  Transmission Date: 20120403
  Serious: Yes (Other)
  Sender: FDA-Public Use
  Company Number: PHHY2011JP106868

PATIENT
  Sex: Female

DRUGS (1)
  1. OXALIPLATIN [Suspect]
     Indication: COLORECTAL CANCER
     Dosage: 734.6 MG/M2, UNK

REACTIONS (5)
  - LOSS OF CONSCIOUSNESS [None]
  - HYPOTENSION [None]
  - CARDIAC ARREST [None]
  - RESPIRATION ABNORMAL [None]
  - HYPERSENSITIVITY [None]
